FAERS Safety Report 7623200-6 (Version None)
Quarter: 2011Q3

REPORT INFORMATION
  Report Type: 
  Country: None (occurrence: None)
  Receive Date: 20110720
  Receipt Date: 20110712
  Transmission Date: 20111222
  Serious: Yes (Hospitalization, Disabling)
  Sender: FDA-Public Use
  Company Number: PHHY2010JP73264

PATIENT
  Sex: Male

DRUGS (6)
  1. SIMULECT [Suspect]
     Indication: RENAL TRANSPLANT
     Dosage: 20 MG, UNK
     Route: 042
  2. NEORAL [Suspect]
     Indication: RENAL TRANSPLANT
     Dosage: UNK UKN, UNK
     Route: 048
     Dates: start: 20101001, end: 20101001
  3. NEORAL [Suspect]
     Dosage: 200 MG, UNK
     Route: 048
  4. CELLCEPT [Concomitant]
     Indication: RENAL TRANSPLANT
     Dosage: UNK UKN, UNK
     Route: 048
  5. SANDIMMUNE [Suspect]
     Indication: RENAL TRANSPLANT
     Dosage: UNK UKN, UNK
     Route: 042
  6. PROGRAF [Concomitant]
     Indication: RENAL TRANSPLANT
     Dosage: UNK UKN, UNK
     Route: 048

REACTIONS (3)
  - RENAL TUBULAR NECROSIS [None]
  - HYPOTENSION [None]
  - SHOCK [None]
